FAERS Safety Report 25524838 (Version 1)
Quarter: 2025Q3

REPORT INFORMATION
  Report Type: Report from Study
  Country: US (occurrence: US)
  Receive Date: 20250707
  Receipt Date: 20250707
  Transmission Date: 20251020
  Serious: Yes (Hospitalization)
  Sender: BRISTOL-MYERS SQUIBB COMPANY
  Company Number: US-BRISTOL-MYERS SQUIBB COMPANY-2025-094588

PATIENT
  Age: 56 Year
  Sex: Male
  Weight: 130.77 kg

DRUGS (1)
  1. REVLIMID [Suspect]
     Active Substance: LENALIDOMIDE
     Indication: Follicular lymphoma
     Dosage: TAKE 1 CAPSULE DAILY
     Route: 048

REACTIONS (5)
  - Pain [Recovering/Resolving]
  - Peripheral swelling [Recovering/Resolving]
  - Pyrexia [Recovering/Resolving]
  - Headache [Recovering/Resolving]
  - Musculoskeletal stiffness [Recovering/Resolving]
